FAERS Safety Report 8055142-9 (Version None)
Quarter: 2011Q4

REPORT INFORMATION
  Report Type: 
  Country: None (occurrence: None)
  Receive Date: 20111213
  Receipt Date: 20110824
  Transmission Date: 20120403
  Serious: No
  Sender: FDA-Public Use
  Company Number: 2011SP040363

PATIENT
  Age: 17 Year
  Sex: Male

DRUGS (3)
  1. CITALOPRAM [Concomitant]
  2. SAPHRIS [Suspect]
     Indication: SCHIZOPHRENIA
     Dosage: 1O MG; HS; SL
     Route: 060
     Dates: start: 20110708, end: 20110817
  3. SAPHRIS [Suspect]
     Indication: BIPOLAR DISORDER
     Dosage: 1O MG; HS; SL
     Route: 060
     Dates: start: 20110708, end: 20110817

REACTIONS (3)
  - GYNAECOMASTIA [None]
  - INAPPROPRIATE SCHEDULE OF DRUG ADMINISTRATION [None]
  - DRUG ADMINISTERED TO PATIENT OF INAPPROPRIATE AGE [None]
